FAERS Safety Report 24533691 (Version 1)
Quarter: 2024Q4

REPORT INFORMATION
  Report Type: Spontaneous
  Country: DE (occurrence: DE)
  Receive Date: 20241022
  Receipt Date: 20241022
  Transmission Date: 20250114
  Serious: Yes (Hospitalization, Other)
  Sender: ROVIPHARM SAS
  Company Number: DE-ROVI-20241057

PATIENT
  Age: 20 Year
  Sex: Female

DRUGS (3)
  1. RISPERIDONE [Suspect]
     Active Substance: RISPERIDONE
     Indication: Product used for unknown indication
  2. RISPERIDONE [Suspect]
     Active Substance: RISPERIDONE
  3. OLANZAPINE [Concomitant]
     Active Substance: OLANZAPINE
     Indication: Product used for unknown indication

REACTIONS (2)
  - Psychotic disorder [Not Recovered/Not Resolved]
  - Extrapyramidal disorder [Unknown]
